FAERS Safety Report 4728255-4 (Version None)
Quarter: 2005Q3

REPORT INFORMATION
  Report Type: 
  Country: None (occurrence: None)
  Receive Date: 20050729
  Receipt Date: 20050228
  Transmission Date: 20060218
  Serious: Yes (Hospitalization, Other)
  Sender: FDA-Public Use
  Company Number: 2005AP01481

PATIENT
  Age: 12325 Day
  Sex: Male

DRUGS (37)
  1. IRESSA [Suspect]
     Indication: OROPHARYNGEAL CANCER STAGE UNSPECIFIED
     Dosage: CONCOMITANT THERAPY PHASE
     Route: 048
     Dates: start: 20050113, end: 20050226
  2. IRESSA [Suspect]
     Dosage: CONCOMITANT THERAPY PHASE
     Route: 048
     Dates: start: 20050310
  3. CISPLATIN [Suspect]
     Indication: OROPHARYNGEAL CANCER STAGE UNSPECIFIED
     Route: 042
     Dates: start: 20050127, end: 20050127
  4. CISPLATIN [Suspect]
     Route: 042
     Dates: start: 20050217, end: 20050217
  5. RADIOTHERAPY [Suspect]
     Indication: OROPHARYNGEAL CANCER STAGE UNSPECIFIED
     Dosage: 70 GY OVER SEVEN WEEKS; ADMINISTERED FOR FIVE DAYS IN EVERY WEEK
     Dates: start: 20050127, end: 20050226
  6. RADIOTHERAPY [Suspect]
     Dosage: 70 GY OVER SEVEN WEEKS; ADMINISTERED FOR FIVE DAYS IN EVERY WEEK
     Dates: start: 20050228, end: 20050304
  7. RADIOTHERAPY [Suspect]
     Dosage: 70 GY OVER SEVEN WEEKS; ADMINISTERED FOR FIVE DAYS IN EVERY WEEK
     Dates: start: 20050311, end: 20050316
  8. EMESET [Concomitant]
     Indication: PROPHYLAXIS OF NAUSEA AND VOMITING
     Route: 042
     Dates: start: 20050127, end: 20050127
  9. EMESET [Concomitant]
     Indication: VOMITING
     Route: 042
     Dates: start: 20050127, end: 20050127
  10. EMESET [Concomitant]
     Route: 042
     Dates: start: 20050217, end: 20050217
  11. EMESET [Concomitant]
     Route: 042
     Dates: start: 20050217, end: 20050217
  12. EMESET [Concomitant]
     Route: 042
     Dates: start: 20050217, end: 20050217
  13. EMESET [Concomitant]
     Route: 042
     Dates: start: 20050217, end: 20050217
  14. EMESET [Concomitant]
     Route: 042
     Dates: start: 20050219, end: 20050219
  15. EMESET [Concomitant]
     Route: 042
     Dates: start: 20050219, end: 20050219
  16. EMESET [Concomitant]
     Route: 042
     Dates: start: 20050225, end: 20050227
  17. EMESET [Concomitant]
     Route: 042
     Dates: start: 20050225, end: 20050227
  18. EMESET [Concomitant]
     Route: 042
     Dates: start: 20050306, end: 20050307
  19. EMESET [Concomitant]
     Route: 042
     Dates: start: 20050306, end: 20050307
  20. MANNITOL [Concomitant]
     Indication: PROPHYLAXIS OF NAUSEA AND VOMITING
     Route: 042
     Dates: start: 20050127, end: 20050127
  21. MANNITOL [Concomitant]
     Route: 042
     Dates: start: 20050217, end: 20050217
  22. POTASSIUM CHLORIDE [Concomitant]
     Indication: HYPOKALAEMIA
     Dates: start: 20050127, end: 20050127
  23. SODIUM BICARBONATE [Concomitant]
     Indication: DENTAL DISORDER PROPHYLAXIS
     Route: 048
     Dates: start: 20050127
  24. MOX [Concomitant]
     Indication: FOLLICULITIS
     Route: 048
     Dates: start: 20050207, end: 20050212
  25. BOLEX FORTE [Concomitant]
     Route: 048
     Dates: start: 20050207, end: 20050207
  26. NUTRAL P [Concomitant]
     Indication: MEDICAL DIET
     Route: 048
     Dates: start: 20050207
  27. T DICLOMOL [Concomitant]
     Indication: PAIN
     Route: 048
     Dates: start: 20050216, end: 20050218
  28. CALCIUM GLUCONATE [Concomitant]
     Indication: HYPOCALCAEMIA
     Route: 042
     Dates: start: 20050217, end: 20050217
  29. MORPHINE [Concomitant]
     Indication: PAIN
     Dosage: DOSE MODIFIED
     Route: 048
     Dates: start: 20050218, end: 20050308
  30. DULCOLAX [Concomitant]
     Indication: CONSTIPATION PROPHYLAXIS
     Dosage: WITHDRAWN DUE TO LOOSE STOOLS
     Route: 048
     Dates: start: 20050218, end: 20050220
  31. PERINORM [Concomitant]
     Indication: NAUSEA
     Route: 048
     Dates: start: 20050219
  32. PERINORM [Concomitant]
     Indication: VOMITING
     Route: 048
     Dates: start: 20050219
  33. POTKLOR [Concomitant]
     Indication: MINERAL SUPPLEMENTATION
     Route: 048
     Dates: start: 20050301, end: 20050308
  34. CIPLOX [Concomitant]
     Indication: PYREXIA
     Route: 042
     Dates: start: 20050225, end: 20050227
  35. ALLOPURINOL [Concomitant]
     Indication: BLOOD URIC ACID INCREASED
     Route: 048
     Dates: start: 20050226, end: 20050308
  36. PANTOP [Concomitant]
     Indication: EPIGASTRIC DISCOMFORT
     Route: 042
     Dates: start: 20050226, end: 20050302
  37. RANTAC [Concomitant]
     Indication: GASTRITIS
     Route: 042
     Dates: start: 20050225, end: 20050226

REACTIONS (6)
  - DIARRHOEA [None]
  - DYSPHAGIA [None]
  - FATIGUE [None]
  - FOLLICULITIS [None]
  - LOWER RESPIRATORY TRACT INFECTION [None]
  - RENAL FUNCTION TEST ABNORMAL [None]
